FAERS Safety Report 8887252 (Version 10)
Quarter: 2014Q2

REPORT INFORMATION
  Report Type: Report from Study
  Country: CA (occurrence: CA)
  Receive Date: 20121101
  Receipt Date: 20140404
  Transmission Date: 20141212
  Serious: Yes (Hospitalization, Other)
  Sender: FDA-Public Use
  Company Number: CA-ROCHE-1110908

PATIENT
  Age: 68 Year
  Sex: Female
  Weight: 80 kg

DRUGS (23)
  1. ACTEMRA [Suspect]
     Indication: RHEUMATOID ARTHRITIS
     Route: 042
     Dates: start: 20110803, end: 20121001
  2. RITUXAN [Suspect]
     Indication: RHEUMATOID ARTHRITIS
     Route: 042
     Dates: start: 20140312
  3. IMURAN [Suspect]
     Indication: RHEUMATOID ARTHRITIS
     Route: 065
  4. ATACAND [Concomitant]
  5. ACTONEL [Concomitant]
  6. VITAMIN C [Concomitant]
  7. VITAMIN E [Concomitant]
  8. OMEGA 3 [Concomitant]
  9. PRAVASTATIN [Concomitant]
  10. ASA [Concomitant]
  11. CLONAZEPAM [Concomitant]
  12. PREDNISONE [Concomitant]
  13. EFFEXOR [Concomitant]
  14. DIAZEPAM [Concomitant]
  15. ZYPREXA [Concomitant]
  16. RANITIDINE [Concomitant]
  17. HYDROXYCHLOROQUINE [Concomitant]
  18. TYLENOL [Concomitant]
  19. ADVIL [Concomitant]
  20. ACETAMINOPHEN [Concomitant]
     Route: 048
     Dates: start: 20140312
  21. DIPHENHYDRAMINE HCL [Concomitant]
     Route: 048
     Dates: start: 20140312
  22. METHYLPREDNISOLONE [Concomitant]
     Route: 042
     Dates: start: 20140312
  23. ZANTAC [Concomitant]
     Route: 048
     Dates: start: 20140312

REACTIONS (13)
  - Cellulitis [Unknown]
  - Haemoglobin decreased [Not Recovered/Not Resolved]
  - Anaemia [Recovering/Resolving]
  - Dyspnoea [Not Recovered/Not Resolved]
  - Myalgia [Not Recovered/Not Resolved]
  - Sinus headache [Not Recovered/Not Resolved]
  - Fatigue [Not Recovered/Not Resolved]
  - Arthritis [Not Recovered/Not Resolved]
  - Alopecia [Unknown]
  - Rheumatoid arthritis [Unknown]
  - Sleep disorder [Not Recovered/Not Resolved]
  - Pyrexia [Not Recovered/Not Resolved]
  - Malaise [Unknown]
